FAERS Safety Report 7124338-2 (Version None)
Quarter: 2010Q4

REPORT INFORMATION
  Report Type: 
  Country: None (occurrence: None)
  Receive Date: 20101126
  Receipt Date: 20101118
  Transmission Date: 20110411
  Serious: Yes (Death, Hospitalization, Other)
  Sender: FDA-Public Use
  Company Number: PHHY2009DK56305

PATIENT
  Sex: Male

DRUGS (4)
  1. ZOLEDRONATE T29581+SOLINJ+BM [Suspect]
     Indication: PROSTATE CANCER METASTATIC
     Dosage: 4 MG EVERY 4 WEEKS
     Route: 042
     Dates: start: 20090930, end: 20100218
  2. ZOLEDRONATE T29581+SOLINJ+BM [Suspect]
     Dosage: 4 MG EVERY 4 WEEKS
     Route: 042
     Dates: end: 20100726
  3. ZOLEDRONATE T29581+SOLINJ+BM [Suspect]
     Dosage: 4 MG EVERY 4 WEEKS
     Route: 042
     Dates: end: 20100830
  4. ANALGESICS [Concomitant]

REACTIONS (5)
  - ARTHRALGIA [None]
  - BONE PAIN [None]
  - DEATH [None]
  - OSTEOARTHRITIS [None]
  - PAIN IN EXTREMITY [None]
